FAERS Safety Report 8289521-1 (Version None)
Quarter: 2012Q2

REPORT INFORMATION
  Report Type: 
  Country: None (occurrence: None)
  Receive Date: 20120417
  Receipt Date: 20120410
  Transmission Date: 20120825
  Serious: Yes (Other)
  Sender: FDA-Public Use
  Company Number: US-PFIZER INC-2012090368

PATIENT
  Sex: Female

DRUGS (8)
  1. LYRICA [Suspect]
     Dosage: 150 MG, 2X/DAY (1 CAPSULE TWICE A DAY)
  2. DIOVAN HCT [Concomitant]
     Dosage: UNK
  3. SYMBICORT [Concomitant]
     Dosage: UNK
  4. LIRAGLUTIDE (NN2211) [Concomitant]
     Dosage: UNK
  5. INSULIN DETEMIR [Concomitant]
     Dosage: UNK
  6. LOVAZA [Concomitant]
     Dosage: UNK
  7. LEVOXYL [Concomitant]
     Dosage: UNK
  8. AMARYL [Concomitant]
     Dosage: UNK

REACTIONS (6)
  - HYPERLIPIDAEMIA [None]
  - NEUROPATHY PERIPHERAL [None]
  - DIABETES MELLITUS [None]
  - HYPERTENSION [None]
  - HYPOTHYROIDISM [None]
  - ASTHMA [None]
